FAERS Safety Report 4340002-7 (Version None)
Quarter: 2004Q2

REPORT INFORMATION
  Report Type: 
  Country: None (occurrence: None)
  Receive Date: 20040416
  Receipt Date: 20001121
  Transmission Date: 20050107
  Serious: Yes (Congenital Anomaly)
  Sender: FDA-Public Use
  Company Number: FR-MERCK-00116142

PATIENT
  Age: 0 Day
  Sex: Female

DRUGS (5)
  1. ACETAMINOPHEN [Suspect]
     Dates: start: 19960125, end: 19960227
  2. ACETAMINOPHEN AND DEXTROPROPOXYPHENE [Suspect]
     Dates: start: 19960125, end: 19960227
  3. ASPIRIN [Suspect]
     Dates: start: 19960125, end: 19960227
  4. CODEINE [Suspect]
     Dates: start: 19960125, end: 19960225
  5. ZOCOR [Suspect]
     Indication: HYPERCHOLESTEROLAEMIA
     Dates: end: 19960227

REACTIONS (2)
  - LOWER LIMB DEFORMITY [None]
  - MATERNAL DRUGS AFFECTING FOETUS [None]
